FAERS Safety Report 24911517 (Version 1)
Quarter: 2025Q1

REPORT INFORMATION
  Report Type: Spontaneous
  Country: US (occurrence: US)
  Receive Date: 20250131
  Receipt Date: 20250131
  Transmission Date: 20250408
  Serious: Yes (Death, Other)
  Sender: AMGEN
  Company Number: US-AMGEN-USASP2025017517

PATIENT

DRUGS (2)
  1. BEVACIZUMAB [Suspect]
     Active Substance: BEVACIZUMAB
     Indication: Hepatocellular carcinoma
     Route: 065
  2. ATEZOLIZUMAB [Concomitant]
     Active Substance: ATEZOLIZUMAB
     Indication: Hepatocellular carcinoma
     Route: 065

REACTIONS (7)
  - Death [Fatal]
  - Hepatocellular carcinoma [Unknown]
  - Drug effective for unapproved indication [Unknown]
  - Therapy partial responder [Unknown]
  - General physical health deterioration [Unknown]
  - Toxicity to various agents [Unknown]
  - Off label use [Unknown]
